FAERS Safety Report 4999304-3 (Version None)
Quarter: 2006Q2

REPORT INFORMATION
  Report Type: 
  Country: None (occurrence: None)
  Receive Date: 20060509
  Receipt Date: 20060509
  Transmission Date: 20061013
  Serious: Yes (Other)
  Sender: FDA-Public Use
  Company Number: None

PATIENT
  Sex: Male
  Weight: 114.3065 kg

DRUGS (2)
  1. DOXYCYCLINE [Suspect]
     Indication: UPPER RESPIRATORY TRACT INFECTION
     Dosage: 100 MG  BID  PO   (DURATION: ONE DOSE TAKEN)
     Route: 048
     Dates: start: 20060110, end: 20060110
  2. NIACIN SA [Concomitant]

REACTIONS (5)
  - ERYTHEMA [None]
  - PENILE PAIN [None]
  - PENILE SWELLING [None]
  - SCROTAL PAIN [None]
  - SCROTAL SWELLING [None]
